FAERS Safety Report 6698609-8 (Version None)
Quarter: 2010Q2

REPORT INFORMATION
  Report Type: 
  Country: None (occurrence: None)
  Receive Date: 20100427
  Receipt Date: 20100415
  Transmission Date: 20101027
  Serious: Yes (Other)
  Sender: FDA-Public Use
  Company Number: GB-PFIZER INC-2010037608

PATIENT
  Age: 57 Year
  Sex: Male
  Weight: 70 kg

DRUGS (11)
  1. CHAMPIX [Suspect]
     Indication: SMOKING CESSATION THERAPY
     Dosage: 500 UG, 1X/DAY
     Dates: start: 20100310, end: 20100301
  2. CHAMPIX [Suspect]
     Dosage: 1 MG, 2X/DAY
     Route: 048
     Dates: start: 20100301, end: 20100301
  3. CHAMPIX [Suspect]
     Dosage: 1 MG, 1X/DAY
     Dates: start: 20100301, end: 20100317
  4. AMLODIPINE [Concomitant]
     Indication: HYPERTENSION
     Dosage: 10 MG, 1X/DAY
     Route: 048
  5. DIAZEPAM [Concomitant]
     Dosage: 5 MG, AS NEEDED
     Route: 048
  6. IRON [Concomitant]
  7. BENDROFLUMETHIAZIDE [Concomitant]
  8. LISINOPRIL [Concomitant]
     Indication: HYPERTENSION
     Dosage: 10 MG, 1X/DAY
     Route: 048
  9. MULTI-VITAMINS [Concomitant]
     Indication: VITAMIN SUPPLEMENTATION
     Dosage: 1 DF, 1X/DAY
  10. MULTI-VITAMINS [Concomitant]
     Indication: MINERAL SUPPLEMENTATION
  11. OMEPRAZOLE [Concomitant]
     Dosage: 20 MG, 1X/DAY

REACTIONS (9)
  - ABDOMINAL DISTENSION [None]
  - ABNORMAL BEHAVIOUR [None]
  - ALCOHOLISM [None]
  - DECREASED APPETITE [None]
  - FEAR [None]
  - INSOMNIA [None]
  - NIGHTMARE [None]
  - TREMOR [None]
  - VOMITING [None]
